FAERS Safety Report 5690578-2 (Version None)
Quarter: 2008Q1

REPORT INFORMATION
  Report Type: 
  Country: None (occurrence: None)
  Receive Date: 20080331
  Receipt Date: 20080331
  Transmission Date: 20080703
  Serious: Yes (Life-Threatening, Hospitalization)
  Sender: FDA-Public Use
  Company Number: None

PATIENT
  Age: 47 Year
  Sex: Female
  Weight: 79.3795 kg

DRUGS (7)
  1. SINGULAIR [Suspect]
     Indication: ASTHMA
     Dosage: 10 MG DAILY AT NIGHT PO
     Route: 048
     Dates: start: 20050801, end: 20080325
  2. LEXAPRO [Concomitant]
  3. LUNESTA [Concomitant]
  4. ADVAIR DISKUS 100/50 [Concomitant]
  5. OMEPRAZOLE [Concomitant]
  6. CONCERTA [Concomitant]
  7. ATIVAN [Concomitant]

REACTIONS (9)
  - ANXIETY [None]
  - DEPRESSION [None]
  - HYPERHIDROSIS [None]
  - INFLUENZA [None]
  - INSOMNIA [None]
  - POST-TRAUMATIC STRESS DISORDER [None]
  - SUICIDAL IDEATION [None]
  - TREMOR [None]
  - VOMITING [None]
